FAERS Safety Report 6787403-5 (Version None)
Quarter: 2010Q2

REPORT INFORMATION
  Report Type: 
  Country: None (occurrence: None)
  Receive Date: 20100623
  Receipt Date: 20070515
  Transmission Date: 20101027
  Serious: No
  Sender: FDA-Public Use
  Company Number: US-PFIZER INC-2007020642

PATIENT
  Sex: Female
  Weight: 61.23 kg

DRUGS (1)
  1. DEPO-PROVERA SUSPENSION/INJ [Suspect]
     Dates: start: 20070308

REACTIONS (4)
  - BACK PAIN [None]
  - DRUG ADMINISTERED AT INAPPROPRIATE SITE [None]
  - HYPOAESTHESIA [None]
  - PAIN IN EXTREMITY [None]
